FAERS Safety Report 17907527 (Version 1)
Quarter: 2020Q2

REPORT INFORMATION
  Report Type: Report from Study
  Country: CO (occurrence: CO)
  Receive Date: 20200617
  Receipt Date: 20200617
  Transmission Date: 20200714
  Serious: Yes (Other)
  Sender: FDA-Public Use
  Company Number: NVSC2018CO005277

PATIENT
  Sex: Female

DRUGS (1)
  1. EXJADE [Suspect]
     Active Substance: DEFERASIROX
     Indication: WHITE BLOOD CELL DISORDER
     Dosage: 500 MG, QD (1 OF 500 MG)
     Route: 065

REACTIONS (5)
  - Haemoglobin decreased [Unknown]
  - Product use in unapproved indication [Unknown]
  - Gastric ulcer [Unknown]
  - Gastritis [Not Recovered/Not Resolved]
  - Vomiting [Unknown]
